FAERS Safety Report 7656823-9 (Version None)
Quarter: 2011Q3

REPORT INFORMATION
  Report Type: 
  Country: None (occurrence: None)
  Receive Date: 20110804
  Receipt Date: 20110412
  Transmission Date: 20111222
  Serious: No
  Sender: FDA-Public Use
  Company Number: US-BAYER-2011-032090

PATIENT
  Age: 60 Year
  Sex: Female

DRUGS (2)
  1. CIPROFLOXACIN HCL [Suspect]
     Indication: KIDNEY INFECTION
     Dosage: TABLET
     Route: 048
     Dates: start: 20110406
  2. HYDROCODONE [Concomitant]

REACTIONS (2)
  - HEADACHE [None]
  - ABDOMINAL PAIN UPPER [None]
